FAERS Safety Report 4303375-7 (Version None)
Quarter: 2004Q1

REPORT INFORMATION
  Report Type: 
  Country: None (occurrence: None)
  Receive Date: 20040223
  Receipt Date: 20040218
  Transmission Date: 20041129
  Serious: Yes (Hospitalization)
  Sender: FDA-Public Use
  Company Number: ENT 2004-0011

PATIENT
  Age: 75 Year
  Sex: Female

DRUGS (5)
  1. COMTAN [Suspect]
     Dosage: ORAL
     Route: 048
     Dates: start: 20031021, end: 20031224
  2. MODOPAR [Concomitant]
  3. MODOPAR SLOW RELEASE [Concomitant]
  4. XANAX [Concomitant]
  5. MOTILIUM ^JANSSEN^ [Concomitant]

REACTIONS (7)
  - BILIARY CYST [None]
  - CHOLELITHIASIS [None]
  - COLITIS [None]
  - DIARRHOEA [None]
  - HYPOKALAEMIA [None]
  - LIVER DISORDER [None]
  - WEIGHT DECREASED [None]
